FAERS Safety Report 19983118 (Version 9)
Quarter: 2022Q3

REPORT INFORMATION
  Report Type: Spontaneous
  Country: AU (occurrence: AU)
  Receive Date: 20211022
  Receipt Date: 20220815
  Transmission Date: 20221027
  Serious: Yes (Other)
  Sender: FDA-Public Use
  Company Number: AU-ABBVIE-21K-008-4032244-00

PATIENT

DRUGS (20)
  1. IMBRUVICA [Suspect]
     Active Substance: IBRUTINIB
     Indication: Central nervous system lymphoma
     Route: 048
  2. IMBRUVICA [Suspect]
     Active Substance: IBRUTINIB
     Indication: Chronic lymphocytic leukaemia
     Route: 048
  3. IMBRUVICA [Suspect]
     Active Substance: IBRUTINIB
     Indication: Mantle cell lymphoma
  4. IMBRUVICA [Suspect]
     Active Substance: IBRUTINIB
     Indication: Marginal zone lymphoma
  5. VENETOCLAX [Suspect]
     Active Substance: VENETOCLAX
     Indication: Central nervous system lymphoma
     Route: 048
  6. VENETOCLAX [Suspect]
     Active Substance: VENETOCLAX
     Indication: Chronic lymphocytic leukaemia
  7. VENETOCLAX [Suspect]
     Active Substance: VENETOCLAX
     Indication: Mantle cell lymphoma
  8. VENETOCLAX [Suspect]
     Active Substance: VENETOCLAX
     Indication: Marginal zone lymphoma
  9. OZURDEX [Suspect]
     Active Substance: DEXAMETHASONE
     Indication: Product used for unknown indication
     Route: 065
  10. CARBOPLATIN [Suspect]
     Active Substance: CARBOPLATIN
     Indication: Product used for unknown indication
     Route: 065
  11. ETOPOSIDE [Suspect]
     Active Substance: ETOPOSIDE
     Indication: Central nervous system lymphoma
     Route: 065
  12. IFOSFAMIDE [Suspect]
     Active Substance: IFOSFAMIDE
     Indication: Product used for unknown indication
     Route: 065
  13. METHOTREXATE [Suspect]
     Active Substance: METHOTREXATE
     Indication: Product used for unknown indication
     Route: 065
  14. OBINUTUZUMAB [Suspect]
     Active Substance: OBINUTUZUMAB
     Indication: Product used for unknown indication
     Route: 048
  15. OFATUMUMAB [Suspect]
     Active Substance: OFATUMUMAB
     Indication: Product used for unknown indication
     Route: 048
  16. RITUXIMAB [Suspect]
     Active Substance: RITUXIMAB
     Indication: Product used for unknown indication
     Route: 048
  17. TEMOZOLOMIDE [Suspect]
     Active Substance: TEMOZOLOMIDE
     Indication: Product used for unknown indication
     Route: 065
  18. DOXYCYCLINE HYCLATE [Suspect]
     Active Substance: DOXYCYCLINE HYCLATE
     Indication: Central nervous system lymphoma
     Route: 048
  19. DEXAMETHASONE [Suspect]
     Active Substance: DEXAMETHASONE
     Indication: Product used for unknown indication
     Route: 065
  20. UNSPECIFIED INGREDIENT [Suspect]
     Active Substance: UNSPECIFIED INGREDIENT
     Indication: Product used for unknown indication
     Route: 065

REACTIONS (12)
  - Poisoning [Unknown]
  - Autologous haematopoietic stem cell transplant [Unknown]
  - Haemorrhage [Unknown]
  - Febrile neutropenia [Unknown]
  - Disease progression [Unknown]
  - Aspergillus infection [Unknown]
  - Atrial fibrillation [Unknown]
  - Cytopenia [Unknown]
  - Infection [Unknown]
  - Thrombocytopenia [Unknown]
  - Neutropenia [Unknown]
  - Anaemia [Unknown]
